FAERS Safety Report 19082220 (Version 3)
Quarter: 2021Q2

REPORT INFORMATION
  Report Type: Spontaneous
  Country: CN (occurrence: CN)
  Receive Date: 20210401
  Receipt Date: 20210504
  Transmission Date: 20210717
  Serious: Yes (Other)
  Sender: FDA-Public Use
  Company Number: CN-ELI_LILLY_AND_COMPANY-CN202103011364

PATIENT
  Age: 57 Year
  Sex: Male

DRUGS (1)
  1. TRULICITY [Suspect]
     Active Substance: DULAGLUTIDE
     Indication: DIABETES MELLITUS
     Dosage: UNK, WEEKLY (1/W)
     Route: 058

REACTIONS (5)
  - Gastroenteritis [Recovered/Resolved]
  - Blood pressure increased [Unknown]
  - Transaminases increased [Unknown]
  - Lipids increased [Unknown]
  - Blood glucose increased [Unknown]
